FAERS Safety Report 6683071-1 (Version None)
Quarter: 2010Q2

REPORT INFORMATION
  Report Type: 
  Country: None (occurrence: None)
  Receive Date: 20100415
  Receipt Date: 20100407
  Transmission Date: 20101027
  Serious: Yes (Death)
  Sender: FDA-Public Use
  Company Number: PHHY2010US23162

PATIENT
  Sex: Male

DRUGS (13)
  1. GLEEVEC [Suspect]
     Indication: LYMPHOPROLIFERATIVE DISORDER
     Dosage: 100 MG/DAY
     Route: 048
     Dates: start: 20100304
  2. PROTONIX [Concomitant]
  3. ACTOS [Concomitant]
  4. URSODIOL [Concomitant]
  5. PREDNISOLONE [Concomitant]
  6. LISINOPRIL [Concomitant]
  7. ZEBETA [Concomitant]
  8. VFEND [Concomitant]
  9. CELLCEPT [Concomitant]
  10. DAPSONE [Concomitant]
  11. ACYCLOVIR [Concomitant]
  12. BISOPROLOL [Concomitant]
  13. FUMARATE DISODIUM [Concomitant]

REACTIONS (1)
  - DEATH [None]
